FAERS Safety Report 6861240 (Version 22)
Quarter: 2015Q4

REPORT INFORMATION
  Report Type: Report from Study
  Country: US (occurrence: US)
  Receive Date: 20080407
  Receipt Date: 20151014
  Transmission Date: 20160305
  Serious: Yes (Other)
  Sender: FDA-Public Use
  Company Number: US-BIOGENIDEC-2008BI008173

PATIENT
  Age: 60 Year
  Sex: Female
  Weight: 125 kg

DRUGS (8)
  1. AMBIEN [Concomitant]
     Active Substance: ZOLPIDEM TARTRATE
     Indication: INSOMNIA
  2. VYTORIN [Concomitant]
     Active Substance: EZETIMIBE\SIMVASTATIN
  3. CYMBALTA [Concomitant]
     Active Substance: DULOXETINE HYDROCHLORIDE
  4. NORVASC [Concomitant]
     Active Substance: AMLODIPINE BESYLATE
  5. TYSABRI [Suspect]
     Active Substance: NATALIZUMAB
     Indication: MULTIPLE SCLEROSIS
     Route: 042
     Dates: start: 20061006, end: 20080325
  6. TYSABRI [Suspect]
     Active Substance: NATALIZUMAB
     Indication: MULTIPLE SCLEROSIS
     Route: 042
     Dates: start: 2003
  7. AMPYRA [Concomitant]
     Active Substance: DALFAMPRIDINE
  8. TYSABRI [Suspect]
     Active Substance: NATALIZUMAB
     Indication: MULTIPLE SCLEROSIS
     Route: 042
     Dates: start: 20080611

REACTIONS (29)
  - Depression [Recovered/Resolved]
  - Meniscus injury [Unknown]
  - Ear infection [Not Recovered/Not Resolved]
  - Asthenia [Not Recovered/Not Resolved]
  - Vitamin D decreased [Unknown]
  - Cystitis [Not Recovered/Not Resolved]
  - Paraesthesia [Not Recovered/Not Resolved]
  - Overweight [Unknown]
  - Fatigue [Recovered/Resolved]
  - Insomnia [Recovered/Resolved]
  - Fall [Recovered/Resolved]
  - Dysstasia [Not Recovered/Not Resolved]
  - Sensory disturbance [Not Recovered/Not Resolved]
  - Pain [Recovered/Resolved]
  - Psychomotor hyperactivity [Recovered/Resolved]
  - Iron deficiency [Unknown]
  - Skin irritation [Recovered/Resolved]
  - Red blood cell microcytes present [Not Recovered/Not Resolved]
  - Multiple sclerosis relapse [Recovered/Resolved]
  - Foreign body [Not Recovered/Not Resolved]
  - Cholelithiasis [Unknown]
  - Pain in extremity [Unknown]
  - Muscular weakness [Not Recovered/Not Resolved]
  - Malignant melanoma [Recovered/Resolved]
  - Gait disturbance [Recovered/Resolved]
  - Decreased immune responsiveness [Unknown]
  - Muscle tightness [Not Recovered/Not Resolved]
  - Drug effect decreased [Not Recovered/Not Resolved]
  - Haemoglobin decreased [Not Recovered/Not Resolved]

NARRATIVE: CASE EVENT DATE: 200610
